FAERS Safety Report 6509446-9 (Version None)
Quarter: 2009Q4

REPORT INFORMATION
  Report Type: 
  Country: None (occurrence: None)
  Receive Date: 20091222
  Receipt Date: 20091217
  Transmission Date: 20100525
  Serious: Yes (Hospitalization)
  Sender: FDA-Public Use
  Company Number: FR-WYE-G05183109

PATIENT
  Sex: Male

DRUGS (2)
  1. ADVIL LIQUI-GELS [Suspect]
     Indication: PYREXIA
     Dosage: UNKNOWN
     Route: 048
  2. ADVIL LIQUI-GELS [Suspect]
     Indication: PAIN

REACTIONS (1)
  - NECROTISING FASCIITIS [None]
